FAERS Safety Report 15295679 (Version 1)
Quarter: 2018Q3

REPORT INFORMATION
  Report Type: Spontaneous
  Country: US (occurrence: US)
  Receive Date: 20180805
  Receipt Date: 20180805
  Transmission Date: 20181010
  Serious: Yes (Disabling)
  Sender: FDA-Public Use
  Company Number: None

PATIENT
  Sex: Female
  Weight: 70.31 kg

DRUGS (1)
  1. MIRENA [Suspect]
     Active Substance: LEVONORGESTREL

REACTIONS (12)
  - Malaise [None]
  - Ovulation pain [None]
  - Enuresis [None]
  - Tumour necrosis [None]
  - Uterine leiomyoma [None]
  - Uterine enlargement [None]
  - Tumour compression [None]
  - Abdominal distension [None]
  - Embedded device [None]
  - Complication of device removal [None]
  - Pain [None]
  - Hernia [None]
